FAERS Safety Report 17495585 (Version 1)
Quarter: 2020Q1

REPORT INFORMATION
  Report Type: Spontaneous
  Country: US (occurrence: US)
  Receive Date: 20200224
  Receipt Date: 20200224
  Transmission Date: 20200409
  Serious: No
  Sender: FDA-Public Use
  Company Number: None

PATIENT
  Age: 61 Year
  Sex: Male

DRUGS (1)
  1. CAPECITABINE++ 500MG TEVA PHARMACEUTICALS USA [Suspect]
     Active Substance: CAPECITABINE
     Indication: RECTAL CANCER
     Dosage: ?          OTHER DOSE:2000MG AM / 1500 P;?
     Route: 048
     Dates: start: 20180803

REACTIONS (1)
  - Nail discolouration [None]

NARRATIVE: CASE EVENT DATE: 202001
